FAERS Safety Report 8282395 (Version 22)
Quarter: 2015Q1

REPORT INFORMATION
  Report Type: Spontaneous
  Country: US (occurrence: US)
  Receive Date: 20111209
  Receipt Date: 20150330
  Transmission Date: 20150721
  Serious: Yes (Hospitalization, Other)
  Sender: FDA-Public Use
  Company Number: US-GLAXOSMITHKLINE-A0957209A

PATIENT
  Age: 53 Year
  Sex: Female

DRUGS (13)
  1. FLOLAN [Suspect]
     Active Substance: EPOPROSTENOL SODIUM
     Dosage: UNK
     Dates: start: 19970826
  2. FLOLAN [Suspect]
     Active Substance: EPOPROSTENOL SODIUM
     Dosage: 20NG/KG/MIN, 15,000 NG/ML, 1.5MG
     Dates: start: 20140522
  3. FLOLAN [Suspect]
     Active Substance: EPOPROSTENOL SODIUM
     Indication: PULMONARY ARTERIAL HYPERTENSION
     Dosage: CONTINUOUS50 NG/KG/MIN 60,000 NG/ML CONCENTRATION, 1.5 MG VIAL STRENGTH, PUMP RATE: 89 ML/DAY.
     Route: 042
     Dates: start: 19970826
  4. FLOLAN [Suspect]
     Active Substance: EPOPROSTENOL SODIUM
     Dosage: UNK
     Dates: start: 19970826
  5. FLOLAN [Suspect]
     Active Substance: EPOPROSTENOL SODIUM
     Dosage: 30 NG/KG/MIN CONTINUOUS; CONCENTRATION: 30,000 NG/ML; PUMP RATE: 63 ML/DAY; VIAL STRENGTH: 1.5 MG
     Dates: start: 19990902
  6. FLOLAN [Suspect]
     Active Substance: EPOPROSTENOL SODIUM
     Dosage: 30 NG/KG/MIN CONTINUOUS; CONCENTRATION: 30,000 NG/ML; PUMP RATE: 63 ML/DAY; VIAL STRENGTH: 1.5 MG
     Dates: start: 19990821
  7. FLOLAN [Suspect]
     Active Substance: EPOPROSTENOL SODIUM
     Dosage: UNK
     Dates: start: 19970826
  8. FLOLAN [Suspect]
     Active Substance: EPOPROSTENOL SODIUM
     Dosage: 40NG/KG/MIN
  9. FLOLAN [Suspect]
     Active Substance: EPOPROSTENOL SODIUM
     Dosage: 30 NG/KG/MIN CONTINUOUS, 63ML RATE
  10. FLOLAN [Suspect]
     Active Substance: EPOPROSTENOL SODIUM
     Dosage: UNK
     Dates: start: 19970826
  11. FLOLAN [Suspect]
     Active Substance: EPOPROSTENOL SODIUM
     Dosage: UNK
     Dates: start: 19970826
  12. FLOLAN [Suspect]
     Active Substance: EPOPROSTENOL SODIUM
     Dosage: CONTINUOUS50 NG/KG/MIN 60,000 NG/ML CONCENTRATION, 1.5 MG VIAL STRENGTH
  13. LETARIS [Suspect]
     Active Substance: AMBRISENTAN
     Indication: PRODUCT USED FOR UNKNOWN INDICATION
     Dosage: UNK
     Route: 065
     Dates: start: 201502

REACTIONS (28)
  - Vomiting [Unknown]
  - Abdominal pain [Unknown]
  - Endotracheal intubation [Unknown]
  - Device infusion issue [Unknown]
  - Hypotension [Unknown]
  - Pruritus [Not Recovered/Not Resolved]
  - Catheterisation cardiac [Unknown]
  - Suicide attempt [Unknown]
  - Gastric infection [Unknown]
  - Hepatitis C [Not Recovered/Not Resolved]
  - Platelet count decreased [Unknown]
  - Anxiety [Unknown]
  - Dyspnoea [Recovering/Resolving]
  - Emotional distress [Recovering/Resolving]
  - Pyrexia [Unknown]
  - Feeling jittery [Recovering/Resolving]
  - Pneumonia [Unknown]
  - Fluid retention [Unknown]
  - Hospitalisation [Unknown]
  - Nausea [Unknown]
  - Intentional overdose [Unknown]
  - Pancreatitis [Unknown]
  - Malaise [Recovering/Resolving]
  - Cough [Unknown]
  - Mental disorder [Unknown]
  - Anaemia [Not Recovered/Not Resolved]
  - Flushing [Unknown]
  - Medication error [Unknown]

NARRATIVE: CASE EVENT DATE: 20111204
